FAERS Safety Report 20699391 (Version 1)
Quarter: 2022Q2

REPORT INFORMATION
  Report Type: Spontaneous
  Country: FR (occurrence: FR)
  Receive Date: 20220412
  Receipt Date: 20220412
  Transmission Date: 20220721
  Serious: Yes (Other)
  Sender: FDA-Public Use
  Company Number: None

PATIENT
  Age: 66 Year
  Sex: Female
  Weight: 60 kg

DRUGS (5)
  1. PREDNISOLONE [Suspect]
     Active Substance: PREDNISOLONE
     Indication: Angioedema
     Dosage: 60 MILLIGRAM, QD (SCORED EFFERVESCENT TABLET)
     Route: 048
     Dates: start: 20210816, end: 20210819
  2. ACETAMINOPHEN [Suspect]
     Active Substance: ACETAMINOPHEN
     Indication: Haematoma
     Dosage: 4 GRAM, QD
     Route: 048
     Dates: start: 20210813, end: 20210816
  3. EBASTINE [Suspect]
     Active Substance: EBASTINE
     Indication: Angioedema
     Dosage: 20 MILLIGRAM, QD (COATED TABLET)
     Route: 048
     Dates: start: 20210816
  4. IBUPROFEN [Suspect]
     Active Substance: IBUPROFEN
     Indication: Haematoma
     Dosage: 1200 MILLIGRAM, QD (COATED TABLET)
     Route: 048
     Dates: start: 20210813, end: 20210816
  5. FLECTOR [Suspect]
     Active Substance: DICLOFENAC EPOLAMINE
     Indication: Haematoma
     Dosage: UNK 3 APPLICATIONS/DAY
     Route: 003
     Dates: start: 20210813, end: 20210816

REACTIONS (1)
  - Hepatic cytolysis [Recovered/Resolved]

NARRATIVE: CASE EVENT DATE: 20210801
